FAERS Safety Report 14929357 (Version 1)
Quarter: 2018Q2

REPORT INFORMATION
  Report Type: Spontaneous
  Country: US (occurrence: US)
  Receive Date: 20180504
  Receipt Date: 20180504
  Transmission Date: 20180711
  Serious: Yes (Other)
  Sender: FDA-Public Use
  Company Number: None

PATIENT
  Age: 64 Year
  Sex: Female
  Weight: 157.05 kg

DRUGS (7)
  1. SAXENDA [Suspect]
     Active Substance: LIRAGLUTIDE
     Indication: WEIGHT CONTROL
     Dosage: ?          QUANTITY:1 INJECTION(S);?
     Route: 058
     Dates: start: 20180415, end: 20180427
  2. MICARDIS [Concomitant]
     Active Substance: TELMISARTAN
  3. ULTRAM ER [Concomitant]
     Active Substance: TRAMADOL HYDROCHLORIDE
  4. TUMERIC [Concomitant]
     Active Substance: HERBALS\TURMERIC
  5. TART CHERRY [Concomitant]
  6. PROBIOTIC [Concomitant]
     Active Substance: PROBIOTICS NOS
  7. CENTRUM MULTI VITAMIN [Concomitant]

REACTIONS (3)
  - Dizziness [None]
  - Diarrhoea [None]
  - Dehydration [None]

NARRATIVE: CASE EVENT DATE: 20180427
